FAERS Safety Report 7505866-4 (Version None)
Quarter: 2011Q2

REPORT INFORMATION
  Report Type: 
  Country: None (occurrence: None)
  Receive Date: 20110526
  Receipt Date: 20090419
  Transmission Date: 20111010
  Serious: Yes (Other)
  Sender: FDA-Public Use
  Company Number: US-BAYER-200918533NA

PATIENT
  Age: 68 Year
  Sex: Male
  Weight: 104 kg

DRUGS (32)
  1. COLACE [Concomitant]
     Dosage: 100 MG, BID
     Route: 048
  2. LOPID [Concomitant]
     Dosage: 600 MG, BID
     Route: 048
  3. MYOVIEW [TETROFOSMIN,ZINC CHLORIDE] [Concomitant]
     Dosage: 10 ML, UNK
     Dates: start: 20020730
  4. PROTAMINE SULFATE [Concomitant]
     Dosage: 450 MG, UNK
     Route: 042
     Dates: start: 20030527, end: 20030527
  5. AMIODARONE HCL [Concomitant]
     Dosage: 140 MG, UNK
     Route: 042
     Dates: start: 20030527
  6. RED BLOOD CELLS [Concomitant]
     Dosage: 1 U, UNK
     Route: 042
     Dates: start: 20030527
  7. ZANTAC [Concomitant]
     Dosage: 150 MG, BID
     Route: 048
  8. ACETYLSALICYLIC ACID SRT [Concomitant]
     Dosage: 325 MG, QD
     Route: 048
  9. LANTUS [Concomitant]
     Dosage: 12 U, QD
     Route: 058
     Dates: start: 20030501
  10. TORSEMIDE [Concomitant]
     Dosage: 20 MG, QD
     Route: 048
  11. ZOCOR [Concomitant]
  12. PROSTIGMIN BROMIDE [Concomitant]
     Dosage: UNK
     Route: 042
     Dates: start: 20030527, end: 20030527
  13. NORTRIPTYLINE HCL [Concomitant]
     Dosage: 50 MG, QD
     Route: 048
  14. CATAPRES [Concomitant]
     Dosage: 0.1 MG 2 TIMES/WEEK
     Route: 048
  15. VERSED [Concomitant]
     Dosage: 2 MG, UNK
     Route: 042
     Dates: start: 20030527
  16. LOPRESSOR [Concomitant]
  17. PROTONIX [Concomitant]
  18. MAGNESIUM SULFATE [Concomitant]
     Dosage: 2 G, UNK
     Route: 042
     Dates: start: 20030527, end: 20030527
  19. LIDOCAINE [Concomitant]
     Dosage: 100MG/ML
     Route: 042
     Dates: start: 20030527, end: 20030527
  20. LIPITOR [Concomitant]
     Dosage: 40 MG, QD
     Route: 048
  21. VERAPAMIL [Concomitant]
  22. CLONIDINE [Concomitant]
  23. HEPARIN [Concomitant]
     Dosage: 57000 U, UNK
     Route: 042
     Dates: start: 20030527
  24. FENTANYL [Concomitant]
     Dosage: 1000 ?G, UNK
     Route: 042
     Dates: start: 20030527
  25. ALBUMIN (HUMAN) [Concomitant]
     Dosage: 100 ML, UNK
     Route: 042
     Dates: start: 20030527
  26. SODIUM BICARBONATE [Concomitant]
     Dosage: 50/HR
     Route: 042
     Dates: start: 20030527, end: 20030527
  27. TRASYLOL [Suspect]
     Indication: CORONARY ARTERY BYPASS
     Dosage: 200 ML, ONCE, LOADING DOSE
     Route: 042
     Dates: start: 20030527, end: 20030527
  28. VITAMIN B-12 [Concomitant]
     Dosage: EVERY MONDAY, INJECTION
  29. GLUCOPHAGE [Concomitant]
  30. TRASYLOL [Suspect]
     Indication: AORTIC VALVE REPLACEMENT
     Dosage: 50ML/HOUR, INFUSION
     Route: 042
     Dates: start: 20030527, end: 20030527
  31. CALAN [Concomitant]
     Dosage: 240 MG, QD
     Route: 048
  32. PLATELETS [Concomitant]
     Dosage: 10 U, UNK
     Route: 042
     Dates: start: 20030527

REACTIONS (4)
  - RENAL FAILURE [None]
  - INJURY [None]
  - EMOTIONAL DISTRESS [None]
  - ANXIETY [None]
